FAERS Safety Report 5153707-5 (Version None)
Quarter: 2006Q4

REPORT INFORMATION
  Report Type: 
  Country: None (occurrence: None)
  Receive Date: 20061118
  Receipt Date: 20061109
  Transmission Date: 20070319
  Serious: Yes (Hospitalization, Other)
  Sender: FDA-Public Use
  Company Number: JP-JNJFOC-20060702915

PATIENT
  Sex: Male
  Weight: 71 kg

DRUGS (30)
  1. REMICADE [Suspect]
     Route: 042
  2. REMICADE [Suspect]
     Route: 042
  3. REMICADE [Suspect]
     Route: 042
  4. REMICADE [Suspect]
     Route: 042
  5. REMICADE [Suspect]
     Route: 042
  6. REMICADE [Suspect]
     Route: 042
  7. REMICADE [Suspect]
     Route: 042
  8. REMICADE [Suspect]
     Route: 042
  9. REMICADE [Suspect]
     Route: 042
  10. REMICADE [Suspect]
     Route: 042
  11. REMICADE [Suspect]
     Route: 042
  12. REMICADE [Suspect]
     Route: 042
  13. REMICADE [Suspect]
     Route: 042
  14. REMICADE [Suspect]
     Indication: RHEUMATOID ARTHRITIS
     Route: 042
  15. RHEUMATREX [Suspect]
     Route: 048
  16. RHEUMATREX [Suspect]
     Route: 048
  17. RHEUMATREX [Suspect]
     Route: 048
  18. RHEUMATREX [Suspect]
     Route: 048
  19. RHEUMATREX [Suspect]
     Indication: RHEUMATOID ARTHRITIS
     Route: 048
  20. PREDONINE [Suspect]
     Indication: RHEUMATOID ARTHRITIS
     Route: 048
  21. AZULFIDINE EN-TABS [Suspect]
     Indication: RHEUMATOID ARTHRITIS
     Route: 048
  22. BASEN [Concomitant]
     Indication: DIABETES MELLITUS
     Route: 048
  23. GASTER D [Concomitant]
     Indication: PROPHYLAXIS
     Route: 048
  24. ADRENAL HORMONE PREPARATIONS [Concomitant]
     Indication: RHEUMATOID ARTHRITIS
  25. VOLTAREN [Concomitant]
     Indication: RHEUMATOID ARTHRITIS
     Route: 054
  26. GASTROM [Concomitant]
     Route: 048
  27. BASEN [Concomitant]
     Route: 048
  28. ASTOMIN [Concomitant]
     Route: 048
  29. MUCOSOLVAN [Concomitant]
     Route: 048
  30. MUCOSTA [Concomitant]
     Route: 048

REACTIONS (1)
  - NON-HODGKIN'S LYMPHOMA [None]
